FAERS Safety Report 7952997-0 (Version None)
Quarter: 2011Q4

REPORT INFORMATION
  Report Type: 
  Country: None (occurrence: None)
  Receive Date: 20111201
  Receipt Date: 20111118
  Transmission Date: 20120403
  Serious: Yes (Other)
  Sender: FDA-Public Use
  Company Number: JP-WATSON-2011-18444

PATIENT
  Age: 56 Year
  Sex: Male

DRUGS (3)
  1. PACLITAXEL [Suspect]
     Dosage: 150 MG/M2 AT 4TH CYCLE EVERY 3 WEEKS
     Route: 065
  2. CARBOPLATIN [Suspect]
     Indication: THYMOMA MALIGNANT
     Dosage: CARBOPLATIN 6 AUC EVERY 3 WEEKS
     Route: 065
  3. PACLITAXEL [Suspect]
     Indication: THYMOMA MALIGNANT
     Dosage: 200 MG/M2 EVERY 3 WEEKS X3 CYCLES
     Route: 065

REACTIONS (6)
  - FATIGUE [None]
  - NEUTROPENIA [None]
  - LEUKOPENIA [None]
  - ANAEMIA [None]
  - MALAISE [None]
  - CONSTIPATION [None]
